FAERS Safety Report 14995198 (Version 3)
Quarter: 2024Q2

REPORT INFORMATION
  Report Type: Report from Study
  Country: DE (occurrence: DE)
  Receive Date: 20180611
  Receipt Date: 20240604
  Transmission Date: 20240716
  Serious: Yes (Death, Other)
  Sender: FDA-Public Use
  Company Number: DE-BAYER-2018-106222

PATIENT
  Age: 32 Year
  Sex: Female

DRUGS (3)
  1. GADOBUTROL [Suspect]
     Active Substance: GADOBUTROL
     Indication: Magnetic resonance imaging
     Dosage: UNK, ONCE
     Route: 042
     Dates: start: 200703, end: 200703
  2. GADOBUTROL [Suspect]
     Active Substance: GADOBUTROL
     Indication: Magnetic resonance imaging
     Dosage: CUMULATIVE DOSE OF 16 ML (1MMOL/ML)
     Dates: start: 200703, end: 200703
  3. GADODIAMIDE [Suspect]
     Active Substance: GADODIAMIDE
     Indication: Magnetic resonance imaging
     Dosage: PATIENT WAS INJECTED SIX TIMES WITH GADODIAMIDE (TWICE IN SEPTEMBER 2005,TWICE IN JANUARY 2006, IN M
     Route: 042
     Dates: start: 200509, end: 200612

REACTIONS (8)
  - Muscle fibrosis [Fatal]
  - Arrhythmia [Fatal]
  - Cardiac arrest [Fatal]
  - Extremity necrosis [None]
  - Contrast media deposition [None]
  - Joint contracture [None]
  - Skin ulcer [None]
  - Skin fibrosis [None]

NARRATIVE: CASE EVENT DATE: 20120101
